FAERS Safety Report 5197364-0 (Version None)
Quarter: 2006Q4

REPORT INFORMATION
  Report Type: 
  Country: None (occurrence: None)
  Receive Date: 20060929
  Receipt Date: 20060630
  Transmission Date: 20070319
  Serious: Yes (Hospitalization)
  Sender: FDA-Public Use
  Company Number: 06P-163-0337368-00

PATIENT
  Age: 20 Year
  Sex: Female
  Weight: 57.1532 kg

DRUGS (3)
  1. DEPAKOTE ER [Suspect]
     Indication: AMAUROTIC FAMILIAL IDIOCY
     Dosage: 500 MG, 2 IN 1 D, ORAL
     Route: 048
     Dates: start: 19960101, end: 20060616
  2. TOPIRAMATE [Concomitant]
  3. RISPERIDONE [Concomitant]

REACTIONS (4)
  - LEUKOPENIA [None]
  - PYREXIA [None]
  - THROMBOCYTOPENIA [None]
  - URINARY TRACT INFECTION [None]
